FAERS Safety Report 7266681-2 (Version None)
Quarter: 2011Q1

REPORT INFORMATION
  Report Type: 
  Country: None (occurrence: None)
  Receive Date: 20110201
  Receipt Date: 20110121
  Transmission Date: 20110831
  Serious: Yes (Hospitalization, Other)
  Sender: FDA-Public Use
  Company Number: US-BIOGENIDEC-2011BI001917

PATIENT
  Age: 46 Year
  Sex: Female
  Weight: 126 kg

DRUGS (5)
  1. CLONIDINE [Concomitant]
     Indication: BLOOD PRESSURE INCREASED
  2. SPIRONOLACTLONE [Concomitant]
     Indication: BLOOD PRESSURE INCREASED
  3. LISINOPRIL [Concomitant]
     Indication: BLOOD PRESSURE INCREASED
  4. POTASSIUM [Concomitant]
     Indication: BLOOD PRESSURE INCREASED
  5. TYSABRI [Suspect]
     Indication: MULTIPLE SCLEROSIS
     Route: 042
     Dates: start: 20100707, end: 20101122

REACTIONS (4)
  - HEADACHE [None]
  - CHEST PAIN [None]
  - HYPERTENSION [None]
  - CARDIOMEGALY [None]
